FAERS Safety Report 22201933 (Version 1)
Quarter: 2023Q2

REPORT INFORMATION
  Report Type: Spontaneous
  Country: US (occurrence: None)
  Receive Date: 20230411
  Receipt Date: 20230411
  Transmission Date: 20230721
  Serious: No
  Sender: FDA-Public Use
  Company Number: None

PATIENT
  Age: 55 Year
  Sex: Female
  Weight: 73.03 kg

DRUGS (21)
  1. TASIGNA [Suspect]
     Active Substance: NILOTINIB
     Indication: Chronic myeloid leukaemia
     Dosage: FREQUENCY : TWICE A DAY;?
     Route: 048
     Dates: start: 202303
  2. ALBUTEROL [Concomitant]
     Active Substance: ALBUTEROL
  3. ARIPIPRAZOLE [Concomitant]
     Active Substance: ARIPIPRAZOLE
  4. ATORVASTATIN [Concomitant]
     Active Substance: ATORVASTATIN
  5. BACTRIM DS [Concomitant]
     Active Substance: SULFAMETHOXAZOLE\TRIMETHOPRIM
  6. BASAGLAR [Concomitant]
     Active Substance: INSULIN GLARGINE
  7. CARVEDILOL [Concomitant]
     Active Substance: CARVEDILOL
  8. CYCLOBENZAPRINE [Concomitant]
     Active Substance: CYCLOBENZAPRINE
  9. DIAZEPAM [Concomitant]
     Active Substance: DIAZEPAM
  10. FLOVENT [Concomitant]
     Active Substance: FLUTICASONE PROPIONATE
  11. GABAPENTIN [Concomitant]
     Active Substance: GABAPENTIN
  12. HYDREA [Concomitant]
     Active Substance: HYDROXYUREA
  13. JARDIANCE [Concomitant]
     Active Substance: EMPAGLIFLOZIN
  14. LEVOFLOXACIN [Concomitant]
     Active Substance: LEVOFLOXACIN
  15. LEXAPRO [Concomitant]
     Active Substance: ESCITALOPRAM OXALATE
  16. MELOXICAM [Concomitant]
     Active Substance: MELOXICAM
  17. NORCO [Concomitant]
     Active Substance: ACETAMINOPHEN\HYDROCODONE BITARTRATE
  18. NORVASC [Concomitant]
     Active Substance: AMLODIPINE BESYLATE
  19. NOVOLOG [Concomitant]
     Active Substance: INSULIN ASPART
  20. OXYCODONE [Concomitant]
     Active Substance: OXYCODONE
  21. TRAZODONE [Concomitant]
     Active Substance: TRAZODONE HYDROCHLORIDE

REACTIONS (1)
  - Nausea [None]
